FAERS Safety Report 5142174-3 (Version None)
Quarter: 2006Q4

REPORT INFORMATION
  Report Type: 
  Country: None (occurrence: None)
  Receive Date: 20061102
  Receipt Date: 20061004
  Transmission Date: 20070319
  Serious: Yes (Other)
  Sender: FDA-Public Use
  Company Number: GB-AVENTIS-200620579GDDC

PATIENT
  Age: 40 Year
  Sex: Male
  Weight: 80 kg

DRUGS (2)
  1. LANTUS [Suspect]
     Route: 058
     Dates: start: 20050201, end: 20061001
  2. HUMAN INSULIN ANALOGUE [Concomitant]

REACTIONS (2)
  - EXTRASYSTOLES [None]
  - SINUS TACHYCARDIA [None]
